FAERS Safety Report 8386597-8 (Version None)
Quarter: 2012Q2

REPORT INFORMATION
  Report Type: 
  Country: None (occurrence: None)
  Receive Date: 20120525
  Receipt Date: 20120112
  Transmission Date: 20120825
  Serious: No
  Sender: FDA-Public Use
  Company Number: US-GLAXOSMITHKLINE-A0961150A

PATIENT
  Age: 83 Year
  Sex: Male

DRUGS (9)
  1. VERAMYST [Suspect]
     Indication: RHINORRHOEA
     Dosage: 2SPR TWICE PER DAY
     Route: 045
     Dates: start: 20111222
  2. POTASSIUM CHLORIDE [Concomitant]
  3. CARVEDILOL [Concomitant]
  4. OMEPRAZOLE [Concomitant]
  5. COUMADIN [Concomitant]
  6. FLOMAX [Concomitant]
  7. FUROSEMIDE [Concomitant]
  8. ALLOPURINOL [Concomitant]
  9. SIMVASTATIN [Concomitant]

REACTIONS (2)
  - DRUG INEFFECTIVE [None]
  - PRODUCT QUALITY ISSUE [None]
